FAERS Safety Report 6618428-8 (Version None)
Quarter: 2010Q1

REPORT INFORMATION
  Report Type: 
  Country: None (occurrence: None)
  Receive Date: 20100302
  Receipt Date: 20090213
  Transmission Date: 20100710
  Serious: Yes (Death, Life-Threatening, Hospitalization, Disabling)
  Sender: FDA-Public Use
  Company Number: 2008US003286

PATIENT
  Age: 39 Year
  Sex: Male

DRUGS (17)
  1. MYCAMINE [Suspect]
     Indication: ASPERGILLOSIS
     Dosage: 150 MG, UID/QD
     Dates: start: 20071019, end: 20071021
  2. MYCAMINE [Suspect]
     Indication: ASPERGILLOSIS
     Dosage: 150 MG, UID/QD
     Dates: start: 20071105, end: 20071202
  3. CELLCEPT [Concomitant]
  4. PROGRAF [Concomitant]
  5. PREDNISONE TAB [Concomitant]
  6. SIROLIMUS (RAPAMUNE) [Concomitant]
  7. ABELCET [Concomitant]
  8. VFEND [Concomitant]
  9. CHEMOTHERAPEUTICS NOS ACTIGALL (URSODEOXYCHOLIC ACID) [Concomitant]
  10. ACYCLOVIR (ACICLOVIR SODIUM) [Concomitant]
  11. BACTRIM [Concomitant]
  12. LEVAQUIN [Concomitant]
  13. LOPID [Concomitant]
  14. MAGNESIUM (MAGNESIUM HYDROXIDE) TABLET [Concomitant]
  15. NORVASC [Concomitant]
  16. POSACONAZOLE [Concomitant]
  17. PROTONIX [Concomitant]

REACTIONS (12)
  - ACUTE GRAFT VERSUS HOST DISEASE IN LIVER [None]
  - BLOOD BILIRUBIN INCREASED [None]
  - BLOOD CREATINE INCREASED [None]
  - BLOOD GLUCOSE INCREASED [None]
  - BLOOD POTASSIUM DECREASED [None]
  - CARDIOPULMONARY FAILURE [None]
  - HAEMOGLOBIN DECREASED [None]
  - HEPATIC FAILURE [None]
  - PLATELET COUNT DECREASED [None]
  - THERAPEUTIC RESPONSE DECREASED [None]
  - TREATMENT NONCOMPLIANCE [None]
  - WHITE BLOOD CELL COUNT DECREASED [None]
